FAERS Safety Report 25487298 (Version 2)
Quarter: 2025Q3

REPORT INFORMATION
  Report Type: Spontaneous
  Country: BR (occurrence: BR)
  Receive Date: 20250627
  Receipt Date: 20250709
  Transmission Date: 20251020
  Serious: Yes (Hospitalization, Other)
  Sender: Haleon PLC
  Company Number: BR-HALEON-2248902

PATIENT
  Age: 42 Year
  Sex: Female

DRUGS (1)
  1. ADVIL [Suspect]
     Active Substance: IBUPROFEN
     Indication: Migraine
     Dates: start: 20250521, end: 20250521

REACTIONS (3)
  - Seizure [Unknown]
  - Loss of consciousness [Unknown]
  - Muscle spasms [Unknown]

NARRATIVE: CASE EVENT DATE: 20250521
